FAERS Safety Report 9674494 (Version 2)
Quarter: 2013Q4

REPORT INFORMATION
  Report Type: Spontaneous
  Country: IE (occurrence: IE)
  Receive Date: 20131107
  Receipt Date: 20131220
  Transmission Date: 20140711
  Serious: Yes (Hospitalization, Other)
  Sender: FDA-Public Use
  Company Number: IE-AMGEN-IRLSP2013077965

PATIENT
  Age: 87 Year
  Sex: Female

DRUGS (7)
  1. PROLIA [Suspect]
     Indication: PROPHYLAXIS
     Dosage: 60 MG, Q6MO
     Route: 058
     Dates: start: 201111
  2. PROLIA [Suspect]
     Indication: OSTEOPOROSIS
  3. BUTRANS                            /00444001/ [Concomitant]
     Indication: PAIN
     Dosage: PATCH
  4. PARACETAMOL [Concomitant]
     Indication: PAIN
  5. ASPIRIN [Concomitant]
     Indication: PAIN
  6. DULCOLAX                           /00064401/ [Concomitant]
     Indication: GASTROINTESTINAL DISORDER
  7. VALIUM [Concomitant]
     Indication: RESTLESS LEGS SYNDROME
     Dosage: 2.5 MG, QHS

REACTIONS (5)
  - Urinary tract infection [Recovered/Resolved]
  - Lower respiratory tract infection [Recovered/Resolved]
  - Fall [Unknown]
  - Rib fracture [Recovered/Resolved]
  - Contusion [Unknown]
